FAERS Safety Report 12927705 (Version 1)
Quarter: 2016Q4

REPORT INFORMATION
  Report Type: Spontaneous
  Country: US (occurrence: US)
  Receive Date: 20161110
  Receipt Date: 20161110
  Transmission Date: 20170207
  Serious: Yes (Hospitalization)
  Sender: FDA-Public Use
  Company Number: None

PATIENT
  Age: 68 Year
  Sex: Male
  Weight: 76.3 kg

DRUGS (3)
  1. TAXOL [Suspect]
     Active Substance: PACLITAXEL
     Dates: end: 20160617
  2. CARBOPLATIN. [Suspect]
     Active Substance: CARBOPLATIN
     Dates: end: 20160617
  3. METFORMIN HYDROCHLORIDE. [Suspect]
     Active Substance: METFORMIN HYDROCHLORIDE
     Dates: end: 20160625

REACTIONS (9)
  - Tachycardia [None]
  - Pulmonary embolism [None]
  - Chest pain [None]
  - Atelectasis [None]
  - Tachypnoea [None]
  - Radiation pneumonitis [None]
  - Pleural effusion [None]
  - Haemoptysis [None]
  - Sepsis [None]

NARRATIVE: CASE EVENT DATE: 20160921
